FAERS Safety Report 23056215 (Version 2)
Quarter: 2024Q1

REPORT INFORMATION
  Report Type: Spontaneous
  Country: None (occurrence: CA)
  Receive Date: 20231011
  Receipt Date: 20240129
  Transmission Date: 20240410
  Serious: Yes (Other)
  Sender: FDA-Public Use
  Company Number: CA-Ascend Therapeutics US, LLC-2146905

PATIENT
  Age: 45 Year
  Sex: Female

DRUGS (2)
  1. ESTROGEL [Suspect]
     Active Substance: ESTRADIOL
     Indication: Product used for unknown indication
     Route: 065
     Dates: start: 202309
  2. ESTROGEL [Suspect]
     Active Substance: ESTRADIOL
     Route: 065
     Dates: start: 202309

REACTIONS (1)
  - Loss of consciousness [Unknown]
